FAERS Safety Report 11826389 (Version 2)
Quarter: 2016Q4

REPORT INFORMATION
  Report Type: Spontaneous
  Country: US (occurrence: US)
  Receive Date: 20151211
  Receipt Date: 20161104
  Transmission Date: 20170206
  Serious: No
  Sender: FDA-Public Use
  Company Number: US-PFIZER INC-2015436375

PATIENT
  Age: 65 Year
  Sex: Male

DRUGS (1)
  1. CELEBREX [Suspect]
     Active Substance: CELECOXIB
     Indication: BACK PAIN
     Dosage: 200 MG, 2X/DAY (AFTER MEALS)
     Route: 048

REACTIONS (3)
  - Drug hypersensitivity [Unknown]
  - Drug prescribing error [Unknown]
  - Product use issue [Unknown]
